FAERS Safety Report 20843257 (Version 1)
Quarter: 2022Q2

REPORT INFORMATION
  Report Type: Spontaneous
  Country: US (occurrence: None)
  Receive Date: 20220517
  Receipt Date: 20220517
  Transmission Date: 20220721
  Serious: Yes (Other)
  Sender: FDA-Public Use
  Company Number: None

PATIENT
  Sex: Male

DRUGS (2)
  1. HUMIRA [Suspect]
     Active Substance: ADALIMUMAB
     Indication: Hidradenitis
     Dosage: 80 MG/0.8ML? ?NJECT 80MG (1 PEN) UNDER THE SKIN (SUBCUTANEOUS INJECTION) ONCE WEEKLY.
     Route: 058
     Dates: start: 20220305
  2. GAVILYTE-G SOL [Concomitant]

REACTIONS (2)
  - Skin lesion [None]
  - Condition aggravated [None]
